FAERS Safety Report 5857430-0 (Version None)
Quarter: 2008Q3

REPORT INFORMATION
  Report Type: 
  Country: None (occurrence: None)
  Receive Date: 20080818
  Receipt Date: 20080411
  Transmission Date: 20090109
  Serious: No
  Sender: FDA-Public Use
  Company Number: TPA2008A00362

PATIENT
  Age: 82 Year
  Sex: Female
  Weight: 76.2043 kg

DRUGS (10)
  1. ROZEREM [Suspect]
     Indication: INITIAL INSOMNIA
     Dosage: 8 MG, QHS, PER ORAL
     Route: 048
     Dates: start: 20080318, end: 20080319
  2. LASIX [Concomitant]
  3. COUMADIN [Concomitant]
  4. DIOVAN [Concomitant]
  5. XOPENEX HFA (LEVOSALBUTAMOL) [Concomitant]
  6. ASTELIN [Concomitant]
  7. PROTONIX [Concomitant]
  8. AMLODIPINE/BENZEPRIL (BENAZEPRIL, AMLODIPINE) [Concomitant]
  9. LEVALBUTEROL (LEVOSALBUTAMOL HYDROCHLORIDE) [Concomitant]
  10. ACETAMINOPHEN [Concomitant]

REACTIONS (3)
  - DYSSTASIA [None]
  - FEELING ABNORMAL [None]
  - INITIAL INSOMNIA [None]
